FAERS Safety Report 5207637-0 (Version None)
Quarter: 2007Q1

REPORT INFORMATION
  Report Type: 
  Country: None (occurrence: None)
  Receive Date: 20070112
  Receipt Date: 20070102
  Transmission Date: 20070707
  Serious: Yes (Life-Threatening, Hospitalization, Disabling, Other)
  Sender: FDA-Public Use
  Company Number: US-PFIZER INC-2006130260

PATIENT
  Sex: Female
  Weight: 108.9 kg

DRUGS (12)
  1. NEURONTIN [Suspect]
     Indication: BIPOLAR DISORDER
  2. NEURONTIN [Suspect]
  3. NEURONTIN [Suspect]
  4. FLUVOXAMINE MALEATE [Concomitant]
  5. CELEXA [Concomitant]
  6. CLONAZEPAM [Concomitant]
  7. MIRTAZAPINE [Concomitant]
  8. LAMICTAL [Concomitant]
  9. HYDROCODONE BITARTRATE + ACETAMINOPHEN [Concomitant]
  10. SEROQUEL [Concomitant]
  11. ULTRACET [Concomitant]
  12. ZYPREXA [Concomitant]

REACTIONS (12)
  - ANXIETY [None]
  - APATHY [None]
  - BIPOLAR DISORDER [None]
  - DEPRESSION [None]
  - DISABILITY [None]
  - DIZZINESS [None]
  - FATIGUE [None]
  - HOSTILITY [None]
  - INDIFFERENCE [None]
  - INTENTIONAL OVERDOSE [None]
  - MENTAL IMPAIRMENT [None]
  - SUICIDE ATTEMPT [None]
